FAERS Safety Report 17414953 (Version 2)
Quarter: 2020Q1

REPORT INFORMATION
  Report Type: Report from Study
  Country: KR (occurrence: KR)
  Receive Date: 20200213
  Receipt Date: 20200306
  Transmission Date: 20200409
  Serious: Yes (Other)
  Sender: FDA-Public Use
  Company Number: KR-ROCHE-2361012

PATIENT
  Age: 36 Year
  Sex: Female
  Weight: 82.7 kg

DRUGS (6)
  1. CHLORPHENIRAMINE [CHLORPHENAMINE] [Concomitant]
     Active Substance: CHLORPHENIRAMINE
     Indication: PROPHYLAXIS
     Route: 042
     Dates: start: 20190508
  2. ACETAMINOPHEN. [Concomitant]
     Active Substance: ACETAMINOPHEN
     Indication: PROPHYLAXIS
     Route: 048
     Dates: start: 20190508
  3. TRASTUZUMAB. [Suspect]
     Active Substance: TRASTUZUMAB
     Indication: HER-2 POSITIVE BREAST CANCER
     Dosage: TRASTUZUMAB(SC) WAS ADMISTERED 600 MG ON 08/MAY/2019, 30/MAY/2019, 21/JUN/2019, 12/JUL/2019, 02/AUG/
     Route: 058
     Dates: start: 20190508
  4. PERTUZUMAB. [Concomitant]
     Active Substance: PERTUZUMAB
     Route: 065
     Dates: start: 20190508
  5. DOCETAXEL. [Suspect]
     Active Substance: DOCETAXEL
     Indication: HER-2 POSITIVE BREAST CANCER
     Dosage: DOCETAXEL WAS ADMISTERED 75MG/M2 ON 08/MAY/2019, 30/MAY/2019, 21/JUN/2019, 12/JUL/2019, 02/AUG/2019
     Route: 065
     Dates: start: 20190508
  6. CARBOPLATIN. [Suspect]
     Active Substance: CARBOPLATIN
     Indication: HER-2 POSITIVE BREAST CANCER
     Dosage: CARBOPLATIN WAS ADMISTERED 400 MG/M2 ON 08/MAY/2019, 30/MAY/2019, 21/JUN/2019, 12/JUL/2019, 02/AUG/2
     Route: 065
     Dates: start: 20190508

REACTIONS (5)
  - Diarrhoea [Recovered/Resolved]
  - Oropharyngeal pain [Recovered/Resolved]
  - Nausea [Recovered/Resolved]
  - Melaena [Recovered/Resolved]
  - Vomiting [Recovered/Resolved]

NARRATIVE: CASE EVENT DATE: 20190529
